APPROVED DRUG PRODUCT: LO SIMPESSE
Active Ingredient: ETHINYL ESTRADIOL; LEVONORGESTREL
Strength: 0.02MG,0.1MG;0.01MG,N/A
Dosage Form/Route: TABLET;ORAL
Application: A206852 | Product #001 | TE Code: AB
Applicant: AUROBINDO PHARMA LTD
Approved: Apr 28, 2017 | RLD: No | RS: No | Type: RX